FAERS Safety Report 5727083-0 (Version None)
Quarter: 2008Q2

REPORT INFORMATION
  Report Type: 
  Country: None (occurrence: None)
  Receive Date: 20080505
  Receipt Date: 20080429
  Transmission Date: 20081010
  Serious: Yes (Hospitalization, Other)
  Sender: FDA-Public Use
  Company Number: US-JNJFOC-20080406115

PATIENT
  Sex: Female
  Weight: 67.59 kg

DRUGS (3)
  1. REMICADE [Suspect]
     Route: 042
  2. REMICADE [Suspect]
     Indication: CROHN'S DISEASE
     Route: 042
  3. PENTASA [Concomitant]

REACTIONS (11)
  - ANAPHYLACTIC SHOCK [None]
  - COLOSTOMY [None]
  - DRUG HYPERSENSITIVITY [None]
  - ERYTHEMA [None]
  - GALLBLADDER DISORDER [None]
  - HEART RATE INCREASED [None]
  - HERNIA [None]
  - INFUSION RELATED REACTION [None]
  - INTESTINAL RESECTION [None]
  - VAGINAL FISTULA [None]
  - WEIGHT DECREASED [None]
